FAERS Safety Report 20037120 (Version 1)
Quarter: 2021Q4

REPORT INFORMATION
  Report Type: Spontaneous
  Country: CA (occurrence: CA)
  Receive Date: 20211105
  Receipt Date: 20211105
  Transmission Date: 20220303
  Serious: Yes (Life-Threatening, Other)
  Sender: FDA-Public Use
  Company Number: CA-TEVA-2021-CA-1971721

PATIENT
  Age: 61 Year
  Sex: Male
  Weight: 76 kg

DRUGS (3)
  1. QUETIAPINE FUMARATE [Suspect]
     Active Substance: QUETIAPINE FUMARATE
     Indication: Mania
     Route: 048
  2. TAMSULOSIN [Concomitant]
     Active Substance: TAMSULOSIN
  3. ADALAT XL - SRT [Concomitant]
     Route: 065

REACTIONS (4)
  - Intentional self-injury [Recovered/Resolved]
  - Panic reaction [Recovered/Resolved]
  - Psychiatric symptom [Recovered/Resolved]
  - Suicidal ideation [Recovered/Resolved]
